FAERS Safety Report 12076611 (Version 3)
Quarter: 2016Q2

REPORT INFORMATION
  Report Type: Spontaneous
  Country: JP (occurrence: JP)
  Receive Date: 20160215
  Receipt Date: 20160428
  Transmission Date: 20160815
  Serious: Yes (Other)
  Sender: FDA-Public Use
  Company Number: JP-ABBVIE-15K-087-1520024-00

PATIENT
  Age: 80 Year
  Sex: Female
  Weight: 45 kg

DRUGS (5)
  1. PROGRAF [Suspect]
     Active Substance: TACROLIMUS\TACROLIMUS ANHYDROUS
     Indication: RHEUMATOID ARTHRITIS
     Route: 065
     Dates: end: 20151203
  2. METHOTREXATE [Concomitant]
     Active Substance: METHOTREXATE
     Indication: PRODUCT USED FOR UNKNOWN INDICATION
     Dosage: 6 MG/WEEK
     Route: 048
     Dates: start: 20070110, end: 20151203
  3. HUMIRA [Suspect]
     Active Substance: ADALIMUMAB
     Indication: RHEUMATOID ARTHRITIS
     Route: 058
     Dates: start: 20110119, end: 20151203
  4. METHOTREXATE [Suspect]
     Active Substance: METHOTREXATE
     Indication: RHEUMATOID ARTHRITIS
     Route: 065
     Dates: end: 20151203
  5. TACROLIMUS. [Concomitant]
     Active Substance: TACROLIMUS
     Indication: PRODUCT USED FOR UNKNOWN INDICATION
     Route: 048
     Dates: start: 20130115, end: 20151203

REACTIONS (5)
  - Drug level increased [Recovered/Resolved]
  - Rash [Recovered/Resolved]
  - White blood cell count increased [Unknown]
  - Skin oedema [Unknown]
  - Dehydration [Unknown]

NARRATIVE: CASE EVENT DATE: 20151203
